FAERS Safety Report 10402253 (Version 1)
Quarter: 2014Q3

REPORT INFORMATION
  Report Type: Spontaneous
  Country: US (occurrence: US)
  Receive Date: 20140822
  Receipt Date: 20140822
  Transmission Date: 20150326
  Serious: No
  Sender: FDA-Public Use
  Company Number: US-PFIZER INC-2014233478

PATIENT
  Age: 45 Year
  Sex: Female
  Weight: 70.3 kg

DRUGS (1)
  1. LYRICA [Suspect]
     Active Substance: PREGABALIN
     Indication: FIBROMYALGIA
     Dosage: UNK
     Dates: start: 201408

REACTIONS (2)
  - Vision blurred [Unknown]
  - Dry eye [Unknown]

NARRATIVE: CASE EVENT DATE: 201408
